FAERS Safety Report 9369180 (Version 2)
Quarter: 2013Q3

REPORT INFORMATION
  Report Type: Spontaneous
  Country: NO (occurrence: NO)
  Receive Date: 20130626
  Receipt Date: 20130826
  Transmission Date: 20140515
  Serious: Yes (Hospitalization)
  Sender: FDA-Public Use
  Company Number: PHHY2013NO065245

PATIENT
  Age: 54 Year
  Sex: Female

DRUGS (8)
  1. EXJADE [Suspect]
     Indication: SERUM FERRITIN INCREASED
     Dosage: UNK UKN, UNK
  2. SELOZOK [Concomitant]
     Indication: HYPERTENSION
     Dosage: 50 MG, DAILY
     Route: 048
     Dates: start: 2012
  3. AMLODIPINE [Concomitant]
     Indication: HYPERTENSION
     Dosage: 5 MG, DAILY
     Route: 048
     Dates: start: 2012
  4. ATARAX P [Concomitant]
     Indication: PRURITUS
     Dosage: 30 MG, DAILY
     Route: 048
     Dates: start: 2013
  5. AERIUS [Concomitant]
     Indication: PRURITUS
     Dosage: 5 MG, DAILY
     Route: 048
     Dates: start: 2013
  6. BACTRIM [Concomitant]
     Indication: PROPHYLAXIS
     Dosage: 3600 MG, DAILY
     Route: 048
     Dates: start: 2012
  7. SULFONAMIDE [Concomitant]
     Dosage: UNK UKN, UNK
  8. SANDIMMUN NEORAL [Concomitant]
     Dosage: UNK UKN, UNK

REACTIONS (7)
  - Graft versus host disease [Recovering/Resolving]
  - Jaundice [Unknown]
  - Pruritus [Unknown]
  - Nausea [Unknown]
  - Fatigue [Unknown]
  - Hepatic enzyme increased [Recovering/Resolving]
  - Transaminases increased [Recovering/Resolving]
